FAERS Safety Report 23221287 (Version 2)
Quarter: 2023Q4

REPORT INFORMATION
  Report Type: Spontaneous
  Country: SG (occurrence: SG)
  Receive Date: 20231123
  Receipt Date: 20231204
  Transmission Date: 20240109
  Serious: Yes (Other)
  Sender: FDA-Public Use
  Company Number: SG-SA-SAC20231121001416

PATIENT
  Age: 68 Year

DRUGS (2)
  1. DUPIXENT [Suspect]
     Active Substance: DUPILUMAB
     Indication: Eczema
     Dosage: 600 MG, 1X
     Route: 065
     Dates: start: 20231009, end: 20231009
  2. DUPIXENT [Suspect]
     Active Substance: DUPILUMAB
     Dosage: 300 MG, QOW
     Route: 065
     Dates: start: 202310

REACTIONS (1)
  - Dermatitis psoriasiform [Recovering/Resolving]

NARRATIVE: CASE EVENT DATE: 20231107
